FAERS Safety Report 8041792-2 (Version None)
Quarter: 2012Q1

REPORT INFORMATION
  Report Type: 
  Country: None (occurrence: None)
  Receive Date: 20120112
  Receipt Date: 20120104
  Transmission Date: 20120608
  Serious: Yes (Hospitalization, Other)
  Sender: FDA-Public Use
  Company Number: US-ACTELION-A-US2011-57444

PATIENT

DRUGS (3)
  1. TRACLEER [Suspect]
     Indication: PULMONARY ARTERIAL HYPERTENSION
     Dosage: 125 MG, BID
     Route: 048
     Dates: start: 20101104, end: 20110908
  2. TRACLEER [Suspect]
     Dosage: UNK
     Route: 048
     Dates: start: 20111013, end: 20111111
  3. TRACLEER [Suspect]
     Dosage: 62.5 MG, BID
     Route: 048
     Dates: start: 20101004, end: 20111104

REACTIONS (10)
  - ALANINE AMINOTRANSFERASE INCREASED [None]
  - NAUSEA [None]
  - ASPARTATE AMINOTRANSFERASE INCREASED [None]
  - BLOOD ALKALINE PHOSPHATASE INCREASED [None]
  - ABDOMINAL PAIN [None]
  - VOMITING [None]
  - TRANSAMINASES INCREASED [None]
  - PRURITUS [None]
  - JAUNDICE [None]
  - BLOOD BILIRUBIN INCREASED [None]
